FAERS Safety Report 7955494-1 (Version None)
Quarter: 2011Q4

REPORT INFORMATION
  Report Type: 
  Country: None (occurrence: None)
  Receive Date: 20111202
  Receipt Date: 20111128
  Transmission Date: 20120403
  Serious: Yes (Hospitalization, Other)
  Sender: FDA-Public Use
  Company Number: US-ABBOTT-11P-163-0878498-00

PATIENT
  Sex: Female
  Weight: 74.91 kg

DRUGS (7)
  1. LISINOPRIL [Concomitant]
     Indication: HYPERTENSION
  2. DOXYCYCLINE [Concomitant]
     Indication: CHRONIC OBSTRUCTIVE PULMONARY DISEASE
     Dosage: ONCE DAILY FOR 15 DAYS A MONTH
  3. DOXYCYCLINE [Concomitant]
     Indication: INFECTION PROPHYLAXIS
  4. HUMIRA [Suspect]
     Dates: start: 20110901
  5. ALBUTEROL [Concomitant]
     Indication: CHRONIC OBSTRUCTIVE PULMONARY DISEASE
  6. HUMIRA [Suspect]
     Indication: RHEUMATOID ARTHRITIS
     Dates: start: 20090101
  7. MELOXICAM [Concomitant]
     Indication: RHEUMATOID ARTHRITIS

REACTIONS (5)
  - WEIGHT DECREASED [None]
  - HEART RATE DECREASED [None]
  - FATIGUE [None]
  - UPPER LIMB FRACTURE [None]
  - FOOT FRACTURE [None]
